FAERS Safety Report 8424286-1 (Version None)
Quarter: 2012Q2

REPORT INFORMATION
  Report Type: 
  Country: None (occurrence: None)
  Receive Date: 20120608
  Receipt Date: 20111128
  Transmission Date: 20120825
  Serious: No
  Sender: FDA-Public Use
  Company Number: US-ASTRAZENECA-2011SE72568

PATIENT
  Age: 3 Year
  Sex: Male
  Weight: 15.4 kg

DRUGS (4)
  1. BENADRYL [Concomitant]
     Indication: MULTIPLE ALLERGIES
  2. SINGULAIR [Concomitant]
     Indication: ASTHMA
  3. ALBUTEROL [Concomitant]
     Indication: ASTHMA
  4. PULMICORT [Suspect]
     Indication: ASTHMA
     Dosage: 0.5 MG/ 2 ML DAILY
     Route: 055
     Dates: start: 20111101

REACTIONS (5)
  - FEELING ABNORMAL [None]
  - CRYING [None]
  - GLOSSODYNIA [None]
  - PAIN [None]
  - PRURITUS [None]
